FAERS Safety Report 25419979 (Version 2)
Quarter: 2025Q2

REPORT INFORMATION
  Report Type: Spontaneous
  Country: US (occurrence: US)
  Receive Date: 20250610
  Receipt Date: 20250630
  Transmission Date: 20250717
  Serious: No
  Sender: SANOFI AVENTIS
  Company Number: US-SA-2025SA163915

PATIENT
  Sex: Female
  Weight: 67.27 kg

DRUGS (3)
  1. DUPIXENT [Suspect]
     Active Substance: DUPILUMAB
     Indication: Neurodermatitis
     Dosage: 300 MG, QOW
     Route: 058
  2. UNSPECIFIED INGREDIENT [Suspect]
     Active Substance: UNSPECIFIED INGREDIENT
     Indication: Immunisation
     Route: 065
     Dates: start: 20250529, end: 20250529
  3. OXYGEN [Concomitant]
     Active Substance: OXYGEN

REACTIONS (2)
  - Herpes zoster [Unknown]
  - Arthralgia [Recovering/Resolving]
